FAERS Safety Report 11275351 (Version 1)
Quarter: 2015Q3

REPORT INFORMATION
  Report Type: Spontaneous
  Country: US (occurrence: None)
  Receive Date: 20150715
  Receipt Date: 20150715
  Transmission Date: 20151125
  Serious: No
  Sender: FDA-Public Use
  Company Number: None

PATIENT
  Age: 62 Year
  Sex: Male

DRUGS (1)
  1. TASIGNA [Suspect]
     Active Substance: NILOTINIB
     Indication: SOFT TISSUE SARCOMA
     Dosage: 300MG, BID, PO?
     Route: 048
     Dates: start: 20150302

REACTIONS (3)
  - Dizziness [None]
  - Erythema [None]
  - Abdominal discomfort [None]
